FAERS Safety Report 19117337 (Version 1)
Quarter: 2021Q2

REPORT INFORMATION
  Report Type: Other
  Country: CA (occurrence: CA)
  Receive Date: 20210410
  Receipt Date: 20210410
  Transmission Date: 20210717
  Serious: Yes (Disabling)
  Sender: FDA-Public Use
  Company Number: CA-APOTEX-2021AP008304

PATIENT
  Age: 37 Year
  Sex: Male
  Weight: 68.03 kg

DRUGS (1)
  1. APO?MOXIFLOXACIN [Suspect]
     Active Substance: MOXIFLOXACIN HYDROCHLORIDE
     Indication: CONJUNCTIVITIS
     Dosage: 1 DROP, TID
     Route: 031

REACTIONS (4)
  - Crying [Recovered/Resolved]
  - Thinking abnormal [Recovered/Resolved]
  - Depression [Recovered/Resolved]
  - Feeling abnormal [Recovered/Resolved]
